FAERS Safety Report 8602592 (Version 2)
Quarter: 2014Q1

REPORT INFORMATION
  Report Type: Spontaneous
  Country: US (occurrence: None)
  Receive Date: 20120323
  Receipt Date: 20130305
  Transmission Date: 20141002
  Serious: Yes (Other)
  Sender: FDA-Public Use
  Company Number: 163-21880-11072297

PATIENT
  Age: 65 Year
  Sex: Female

DRUGS (12)
  1. REVLIMID [Suspect]
     Indication: PLASMA CELL MYELOMA
     Dosage: 15 MG, DAILY X 3 WEEKS, OF1 WK OFF, PO
     Route: 048
     Dates: start: 20100701
  2. WARFARIN SODIUM [Concomitant]
  3. LEVOTHYROXINE SODIUM [Concomitant]
  4. OMEPRAZOLE [Concomitant]
  5. TYLENOL EXTRA STRENGTH (PARACETAMOL) [Concomitant]
  6. CALCIUM + D (CALCIUM D3 ^STADA^) [Concomitant]
  7. ZOMETA (ZOLEDRONIC ACID) [Concomitant]
  8. DEXAMETHASONE [Concomitant]
  9. ZYRTEC (CETIRIZINE HYDROCHLORIDE) [Concomitant]
  10. NEUPOGEN (FILGRASTIM) [Concomitant]
  11. VELCADE (BORTEZOMIB) [Concomitant]
  12. MEDROL [Suspect]

REACTIONS (5)
  - Platelet count decreased [None]
  - Blood count abnormal [None]
  - Neutrophil count decreased [None]
  - Haemoglobin decreased [None]
  - Drug ineffective [None]
